FAERS Safety Report 6827990-1 (Version None)
Quarter: 2010Q3

REPORT INFORMATION
  Report Type: 
  Country: None (occurrence: None)
  Receive Date: 20100709
  Receipt Date: 20100701
  Transmission Date: 20110219
  Serious: Yes (Congenital Anomaly)
  Sender: FDA-Public Use
  Company Number: A0869130A

PATIENT
  Sex: Female
  Weight: 1.6 kg

DRUGS (4)
  1. RETROVIR [Suspect]
     Indication: ANTIRETROVIRAL THERAPY
     Dosage: 2000MGD PER DAY
     Dates: start: 20100421, end: 20100425
  2. KALETRA [Suspect]
     Indication: ANTIRETROVIRAL THERAPY
     Dosage: 4TAB PER DAY
     Dates: start: 20091104, end: 20100408
  3. KALETRA [Suspect]
     Dosage: 6TAB PER DAY
     Dates: start: 20100408, end: 20100425
  4. TRUVADA [Suspect]
     Indication: ANTIRETROVIRAL THERAPY
     Dosage: 1TAB PER DAY
     Dates: start: 20091104

REACTIONS (3)
  - DRUG EXPOSURE DURING PREGNANCY [None]
  - POLYDACTYLY [None]
  - PREMATURE BABY [None]
